FAERS Safety Report 9003115 (Version 1)
Quarter: 2013Q1

REPORT INFORMATION
  Report Type: Spontaneous
  Country: US (occurrence: US)
  Receive Date: 20130108
  Receipt Date: 20130108
  Transmission Date: 20140127
  Serious: Yes (Death)
  Sender: FDA-Public Use
  Company Number: US-PFIZER INC-2013004303

PATIENT
  Age: 43 Year
  Sex: Female

DRUGS (4)
  1. ALPRAZOLAM [Suspect]
     Route: 048
  2. BUPROPION [Suspect]
     Route: 048
  3. DIPHENHYDRAMINE [Suspect]
     Route: 048
  4. ACETAMINOPHEN [Suspect]
     Route: 048

REACTIONS (1)
  - Completed suicide [Fatal]
